FAERS Safety Report 5429358-1 (Version None)
Quarter: 2007Q3

REPORT INFORMATION
  Report Type: 
  Country: None (occurrence: None)
  Receive Date: 20070827
  Receipt Date: 20070814
  Transmission Date: 20080115
  Serious: Yes (Death)
  Sender: FDA-Public Use
  Company Number: 160232ISR

PATIENT
  Age: 53 Year
  Sex: Male

DRUGS (6)
  1. METRONIDAZOLE [Suspect]
  2. AUGMENTIN '125' [Suspect]
  3. GENTAMICIN [Suspect]
  4. LEVOFLOXACIN [Suspect]
  5. ACETAMINOPHEN [Suspect]
  6. VANCOMYCIN [Suspect]

REACTIONS (2)
  - DISORIENTATION [None]
  - METABOLIC ACIDOSIS [None]
